FAERS Safety Report 21771558 (Version 2)
Quarter: 2023Q2

REPORT INFORMATION
  Report Type: Report from Study
  Country: IN (occurrence: IN)
  Receive Date: 20221223
  Receipt Date: 20230613
  Transmission Date: 20230722
  Serious: Yes (Other)
  Sender: FDA-Public Use
  Company Number: IN-002147023-NVSC2022IN192469

PATIENT
  Age: 64 Year
  Sex: Female

DRUGS (3)
  1. RIBOCICLIB [Suspect]
     Active Substance: RIBOCICLIB
     Indication: Breast cancer metastatic
     Dosage: 600 MG, QD
     Route: 065
     Dates: start: 202109
  2. RIBOCICLIB [Suspect]
     Active Substance: RIBOCICLIB
     Dosage: 600 MG, QD, (FOR 21 DAYS AND 7 DAYS OFF)
     Route: 065
     Dates: start: 20220510
  3. RIBOCICLIB [Suspect]
     Active Substance: RIBOCICLIB
     Dosage: 600 MG, QD (FOR 21 DAYS AND 7 DAYS OFF)
     Route: 065
     Dates: start: 20230606

REACTIONS (14)
  - Hypertension [Unknown]
  - Skin hypertrophy [Unknown]
  - Nodule [Unknown]
  - Lymphadenopathy [Unknown]
  - Electrocardiogram QT prolonged [Recovered/Resolved]
  - Rib fracture [Unknown]
  - Thyroid mass [Unknown]
  - Arthralgia [Recovered/Resolved]
  - Pain [Recovered/Resolved]
  - Decreased appetite [Recovered/Resolved]
  - Cough [Recovered/Resolved]
  - Back pain [Recovered/Resolved]
  - Decreased appetite [Recovered/Resolved]
  - Decreased appetite [Recovered/Resolved]

NARRATIVE: CASE EVENT DATE: 20211117
